FAERS Safety Report 25612437 (Version 1)
Quarter: 2025Q3

REPORT INFORMATION
  Report Type: Spontaneous
  Country: MY (occurrence: MY)
  Receive Date: 20250728
  Receipt Date: 20250728
  Transmission Date: 20251020
  Serious: Yes (Other)
  Sender: PFIZER
  Company Number: MY-PFIZER INC-202500148698

PATIENT
  Age: 41 Year
  Sex: Male

DRUGS (1)
  1. ZITHROMAX [Suspect]
     Active Substance: AZITHROMYCIN DIHYDRATE
     Indication: Sinusitis
     Dosage: 250 MG, 1X/DAY
     Route: 048

REACTIONS (1)
  - Bronchospasm [Recovering/Resolving]
